FAERS Safety Report 23341280 (Version 3)
Quarter: 2024Q1

REPORT INFORMATION
  Report Type: Report from Study
  Country: CA (occurrence: CA)
  Receive Date: 20231227
  Receipt Date: 20240208
  Transmission Date: 20240410
  Serious: No
  Sender: FDA-Public Use
  Company Number: CA-ABBVIE-5560144

PATIENT
  Sex: Female

DRUGS (1)
  1. QULIPTA [Suspect]
     Active Substance: ATOGEPANT
     Indication: Migraine
     Dosage: LAST ADMIN DATE: 2023
     Route: 048
     Dates: start: 20230605

REACTIONS (1)
  - Dysuria [Not Recovered/Not Resolved]
